FAERS Safety Report 13403519 (Version 4)
Quarter: 2018Q1

REPORT INFORMATION
  Report Type: Spontaneous
  Country: AR (occurrence: AR)
  Receive Date: 20170404
  Receipt Date: 20180214
  Transmission Date: 20180508
  Serious: Yes (Hospitalization, Other)
  Sender: FDA-Public Use
  Company Number: AR-AMGEN-ARGSP2017049686

PATIENT
  Age: 68 Year
  Sex: Female

DRUGS (1)
  1. ENBREL [Suspect]
     Active Substance: ETANERCEPT
     Indication: RHEUMATOID ARTHRITIS
     Dosage: 50 MG, EVERY 20 DAYS
     Route: 065
     Dates: start: 20090401

REACTIONS (6)
  - Speech disorder [Recovering/Resolving]
  - Pyrexia [Unknown]
  - Cognitive disorder [Recovering/Resolving]
  - Urinary tract infection [Unknown]
  - Product use issue [Unknown]
  - Cerebrovascular accident [Recovering/Resolving]

NARRATIVE: CASE EVENT DATE: 20090401
